FAERS Safety Report 5749711-6 (Version None)
Quarter: 2008Q2

REPORT INFORMATION
  Report Type: 
  Country: None (occurrence: None)
  Receive Date: 20080527
  Receipt Date: 20080518
  Transmission Date: 20081010
  Serious: Yes (Death, Hospitalization)
  Sender: FDA-Public Use
  Company Number: IL-ABBOTT-08P-082-0451724-00

PATIENT
  Sex: Male
  Weight: 53 kg

DRUGS (7)
  1. KALETRA [Suspect]
     Indication: HIV INFECTION
     Dates: start: 20080310
  2. LAMIVUDINE + ZIDOVUDINE [Concomitant]
     Indication: HIV INFECTION
     Dates: start: 20080310
  3. RESPRIM FORTE [Concomitant]
     Indication: ANTIFUNGAL PROPHYLAXIS
     Dates: start: 20080310
  4. FLUCONAZOLE [Concomitant]
     Indication: DRUG USE FOR UNKNOWN INDICATION
  5. NYSTATIN [Concomitant]
     Indication: DRUG USE FOR UNKNOWN INDICATION
     Dosage: MOUTH WASH
  6. KARIN [Concomitant]
     Indication: DRUG USE FOR UNKNOWN INDICATION
  7. CEFUROXIME AXETIL [Concomitant]
     Indication: DRUG USE FOR UNKNOWN INDICATION

REACTIONS (6)
  - COUGH [None]
  - GENERAL PHYSICAL HEALTH DETERIORATION [None]
  - HEADACHE [None]
  - HYPERTENSION [None]
  - MYCOBACTERIUM AVIUM COMPLEX INFECTION [None]
  - ORAL CANDIDIASIS [None]
